FAERS Safety Report 9743270 (Version 1)
Quarter: 2013Q4

REPORT INFORMATION
  Report Type: Spontaneous
  Country: US (occurrence: US)
  Receive Date: 20131210
  Receipt Date: 20131210
  Transmission Date: 20140711
  Serious: No
  Sender: FDA-Public Use
  Company Number: US-GILEAD-2009-0025197

PATIENT
  Sex: Female
  Weight: 68.95 kg

DRUGS (12)
  1. LETAIRIS [Suspect]
     Indication: PULMONARY ARTERIAL HYPERTENSION
     Route: 048
     Dates: start: 20091008
  2. FUROSEMIDE [Concomitant]
  3. DILTIAZEM [Concomitant]
  4. PREDNISONE [Concomitant]
  5. PILOCARPINE [Concomitant]
  6. ZOLPIDEM [Concomitant]
  7. GABAPENTIN [Concomitant]
  8. CITALOPRAM [Concomitant]
  9. AZITHROMYCIN [Concomitant]
  10. DIGOXIN [Concomitant]
  11. WARFARIN [Concomitant]
  12. PROTONIX [Concomitant]

REACTIONS (1)
  - Abdominal pain upper [Unknown]
